FAERS Safety Report 4949043-X (Version None)
Quarter: 2006Q1

REPORT INFORMATION
  Report Type: 
  Country: None (occurrence: None)
  Receive Date: 20060321
  Receipt Date: 20051201
  Transmission Date: 20060701
  Serious: Yes (Hospitalization)
  Sender: FDA-Public Use
  Company Number: JP-JPN-A20052947

PATIENT
  Age: 73 Year
  Sex: Female

DRUGS (2)
  1. PAXIL [Suspect]
     Indication: DEPRESSION
     Route: 048
     Dates: start: 20050201, end: 20050418
  2. FLUID [Concomitant]
     Route: 042

REACTIONS (10)
  - ANXIETY [None]
  - CONSTIPATION [None]
  - DELUSION [None]
  - DISORIENTATION [None]
  - DRUG WITHDRAWAL SYNDROME [None]
  - EMOTIONAL DISORDER [None]
  - HYPERHIDROSIS [None]
  - MYOCLONUS [None]
  - PYREXIA [None]
  - RESTLESSNESS [None]
